FAERS Safety Report 11861687 (Version 5)
Quarter: 2016Q2

REPORT INFORMATION
  Report Type: Report from Study
  Country: US (occurrence: US)
  Receive Date: 20151222
  Receipt Date: 20160606
  Transmission Date: 20160815
  Serious: Yes (Hospitalization)
  Sender: FDA-Public Use
  Company Number: US-BIOGEN-2015BI00161148

PATIENT
  Age: 38 Year
  Sex: Female
  Weight: 77 kg

DRUGS (13)
  1. ASPIRIN. [Concomitant]
     Active Substance: ASPIRIN
     Indication: FLUSHING
     Route: 048
     Dates: start: 20120613
  2. ATORVASTATIN [Concomitant]
     Active Substance: ATORVASTATIN
     Indication: BLOOD CHOLESTEROL
     Route: 048
     Dates: start: 20140611
  3. ACETYL CARNITINE [Concomitant]
     Indication: FATIGUE
     Route: 048
     Dates: start: 20140917
  4. BG00012 [Suspect]
     Active Substance: DIMETHYL FUMARATE
     Indication: RELAPSING-REMITTING MULTIPLE SCLEROSIS
     Route: 048
     Dates: start: 20110701
  5. CLONAZEPAM. [Concomitant]
     Active Substance: CLONAZEPAM
     Route: 048
  6. TESTOSTERONE. [Concomitant]
     Active Substance: TESTOSTERONE
     Indication: LIBIDO DECREASED
     Dosage: 6MG/ML
     Route: 062
     Dates: start: 20150112
  7. GABAPENTIN. [Concomitant]
     Active Substance: GABAPENTIN
     Indication: HYPOAESTHESIA
     Route: 048
     Dates: start: 20150625
  8. CLONAZEPAM. [Concomitant]
     Active Substance: CLONAZEPAM
     Indication: INSOMNIA
     Route: 048
     Dates: start: 20110922
  9. IRON [Concomitant]
     Active Substance: IRON
     Indication: ANAEMIA
     Route: 048
     Dates: start: 20140321
  10. LISINOPRIL. [Concomitant]
     Active Substance: LISINOPRIL
     Indication: HYPERTENSION
     Route: 048
     Dates: start: 20140814
  11. GABAPENTIN. [Concomitant]
     Active Substance: GABAPENTIN
     Route: 048
  12. BG00012 [Suspect]
     Active Substance: DIMETHYL FUMARATE
     Route: 048
     Dates: start: 20140917
  13. VITAMIN D [Concomitant]
     Active Substance: CHOLECALCIFEROL
     Indication: SUPPLEMENTATION THERAPY
     Route: 048
     Dates: start: 20130601

REACTIONS (2)
  - Gastroenteritis [Recovered/Resolved]
  - Urinary tract infection [Recovered/Resolved]

NARRATIVE: CASE EVENT DATE: 20151213
